FAERS Safety Report 13271752 (Version 1)
Quarter: 2017Q1

REPORT INFORMATION
  Report Type: Spontaneous
  Country: AU (occurrence: AU)
  Receive Date: 20170227
  Receipt Date: 20170227
  Transmission Date: 20170428
  Serious: Yes (Other)
  Sender: FDA-Public Use
  Company Number: AU-ACCORD-048608

PATIENT
  Age: 26 Year
  Sex: Female

DRUGS (7)
  1. COLECALCIFEROL [Concomitant]
     Active Substance: CHOLECALCIFEROL
  2. MYCOPHENOLIC ACID. [Concomitant]
     Active Substance: MYCOPHENOLIC ACID
     Indication: IMMUNOSUPPRESSION
  3. PREDNISOLONE. [Concomitant]
     Active Substance: PREDNISOLONE
     Indication: IMMUNOSUPPRESSION
  4. TACROLIMUS. [Suspect]
     Active Substance: TACROLIMUS
     Indication: IMMUNOSUPPRESSION
  5. ALUMINIUM HYDROXIDE/MAGNESIUM HYDROXIDE [Concomitant]
  6. RANITIDINE. [Concomitant]
     Active Substance: RANITIDINE
  7. SULFAMETHOXAZOLE/TRIMETHOPRIM [Concomitant]
     Dosage: 400/80 MG DAILY

REACTIONS (7)
  - Delirium [Recovered/Resolved]
  - Vision blurred [Recovered/Resolved]
  - Hypertension [Recovered/Resolved]
  - Toxicity to various agents [Recovered/Resolved]
  - Nausea [Recovered/Resolved]
  - Vomiting [Recovered/Resolved]
  - Tremor [Recovered/Resolved]
